FAERS Safety Report 4746077-5 (Version None)
Quarter: 2005Q3

REPORT INFORMATION
  Report Type: 
  Country: None (occurrence: None)
  Receive Date: 20050816
  Receipt Date: 20050804
  Transmission Date: 20060218
  Serious: Yes (Hospitalization)
  Sender: FDA-Public Use
  Company Number: FR-ROCHE-413566

PATIENT
  Age: 80 Year
  Sex: Male

DRUGS (12)
  1. NAPROSYN [Suspect]
     Indication: DRUG USE FOR UNKNOWN INDICATION
     Route: 048
     Dates: start: 20040628, end: 20040630
  2. MODOPAR [Suspect]
     Indication: PARKINSON'S DISEASE
     Route: 048
     Dates: end: 20040630
  3. AMIODARONE HCL [Suspect]
     Indication: ATRIAL FIBRILLATION
     Route: 048
     Dates: end: 20040630
  4. KARDEGIC [Suspect]
     Indication: ANGINA PECTORIS
     Route: 048
     Dates: end: 20040630
  5. VASTAREL [Suspect]
     Indication: ANGINA PECTORIS
     Route: 048
     Dates: end: 20040630
  6. NITROGLYCERIN [Suspect]
     Indication: PARKINSON'S DISEASE
     Dosage: FORM REPORTED AS ^LOCAL^.
     Route: 050
     Dates: end: 20040630
  7. FENOFIBRATE [Suspect]
     Indication: DRUG USE FOR UNKNOWN INDICATION
     Route: 065
  8. OGAST [Suspect]
     Indication: DRUG USE FOR UNKNOWN INDICATION
     Route: 065
  9. PIASCLEDINE [Suspect]
     Indication: DRUG USE FOR UNKNOWN INDICATION
     Route: 065
  10. MEDROL [Suspect]
     Indication: DRUG USE FOR UNKNOWN INDICATION
     Route: 065
  11. MOCLAMINE [Concomitant]
  12. AMLODIPINE BESYLATE [Concomitant]

REACTIONS (15)
  - CULTURE URINE POSITIVE [None]
  - DYSPNOEA [None]
  - ESCHERICHIA INFECTION [None]
  - GENERAL PHYSICAL HEALTH DETERIORATION [None]
  - HAEMODIALYSIS [None]
  - LACTIC ACIDOSIS [None]
  - LEUKOCYTURIA [None]
  - MULTI-ORGAN FAILURE [None]
  - NAUSEA [None]
  - PULMONARY OEDEMA [None]
  - RENAL FAILURE [None]
  - SEPSIS [None]
  - SEPTIC SHOCK [None]
  - THROMBOCYTOPENIA [None]
  - VOMITING [None]
